FAERS Safety Report 24605243 (Version 1)
Quarter: 2024Q4

REPORT INFORMATION
  Report Type: Spontaneous
  Country: ES (occurrence: ES)
  Receive Date: 20241111
  Receipt Date: 20241111
  Transmission Date: 20250115
  Serious: Yes (Hospitalization)
  Sender: MYLAN
  Company Number: None

PATIENT
  Age: 2 Year
  Sex: Female
  Weight: 11 kg

DRUGS (6)
  1. DOXORUBICIN [Interacting]
     Active Substance: DOXORUBICIN
     Indication: Acute leukaemia
     Dosage: 14 MILLIGRAM, CYCLE DOSE UNIT FREQUENCY: 14 MG-MILLIGRAM, FREQUENCY UNIT: 1 CYCLIC
     Route: 042
     Dates: start: 20170315, end: 20170405
  2. DEXAMETHASONE [Interacting]
     Active Substance: DEXAMETHASONE
     Indication: Acute leukaemia
     Dosage: 5 MILLIGRAM, QD, DOSE UNIT FREQUENCY: 5 MILLIGRAMS, DOSE PER INTAKE: 5 MILLIGRAMS NUMBER
     Route: 042
     Dates: start: 20170315, end: 20170405
  3. METHOTREXATE [Interacting]
     Active Substance: METHOTREXATE
     Indication: Acute leukaemia
     Dosage: 10 MILLIGRAM, QD : DOSE UNIT FREQUENCY: 10 MG-MILLIGRAMS DOSE PER INTAKE: 10 MILLIGRAMS
     Route: 042
     Dates: start: 20150315, end: 20170403
  4. CYTARABINE [Interacting]
     Active Substance: CYTARABINE
     Indication: Acute leukaemia
     Dosage: 20 MILLIGRAM, QD, DOSE UNIT FREQUENCY: 20 MG-MILLIGRAMS DOSE PER INTAKE: 20 MILLIGRAMS
     Route: 042
     Dates: start: 20170315, end: 20170403
  5. VINCRISTINE SULFATE [Interacting]
     Active Substance: VINCRISTINE SULFATE
     Indication: Acute leukaemia
     Dosage: 0.7 MILLIGRAM, CYCLE, DOSE UNIT FREQUENCY: 0.7 MILLIGRAMS DOSE PER INTAKE: 0.7 MILLIGRAMS
     Route: 042
     Dates: start: 20170315, end: 20170405
  6. ASPARAGINASE [Interacting]
     Active Substance: ASPARAGINASE
     Indication: Acute leukaemia
     Dosage: 470 INTERNATIONAL UNIT, CYCLE, DOSE UNIT FREQUENCY: 470 INTERNATIONAL UNITS DOSE PER INTAKE
     Route: 042
     Dates: start: 20170315, end: 20170405

REACTIONS (3)
  - Metapneumovirus infection [Recovered/Resolved]
  - Hyperglycaemia [Recovered/Resolved]
  - Drug interaction [Unknown]

NARRATIVE: CASE EVENT DATE: 20170322
